FAERS Safety Report 6319057-6 (Version None)
Quarter: 2009Q3

REPORT INFORMATION
  Report Type: 
  Country: None (occurrence: None)
  Receive Date: 20090821
  Receipt Date: 20080731
  Transmission Date: 20100115
  Serious: No
  Sender: FDA-Public Use
  Company Number: US-ABBOTT-08P-163-0467542-00

PATIENT
  Sex: Female

DRUGS (2)
  1. NIASPAN [Suspect]
     Indication: BLOOD CHOLESTEROL INCREASED
     Dosage: 500 MG AT BEDTIME
     Route: 048
     Dates: start: 20080701
  2. 25 PILLS LIST NOT AVAILABLE [Concomitant]
     Indication: DRUG USE FOR UNKNOWN INDICATION

REACTIONS (4)
  - DYSPHONIA [None]
  - PARAESTHESIA [None]
  - PRODUCTIVE COUGH [None]
  - RESPIRATORY TRACT INFECTION [None]
